FAERS Safety Report 23514952 (Version 9)
Quarter: 2024Q2

REPORT INFORMATION
  Report Type: Spontaneous
  Country: JP (occurrence: JP)
  Receive Date: 20240212
  Receipt Date: 20240529
  Transmission Date: 20240716
  Serious: Yes (Death, Other)
  Sender: FDA-Public Use
  Company Number: JP-GENMAB-2024-00347

PATIENT
  Age: 74 Year
  Sex: Female
  Weight: 40.4 kg

DRUGS (4)
  1. EPKINLY [Suspect]
     Active Substance: EPCORITAMAB-BYSP
     Indication: Diffuse large B-cell lymphoma refractory
     Dosage: 0.16 MILLIGRAM, SINGLE, FIRST ADMINISTRATION
     Route: 065
     Dates: start: 20240201, end: 20240201
  2. EPKINLY [Suspect]
     Active Substance: EPCORITAMAB-BYSP
     Dosage: 0.8 MILLIGRAM, SINGLE, SECOND ADMINISTRATION
     Route: 065
     Dates: start: 20240208, end: 20240208
  3. EPKINLY [Suspect]
     Active Substance: EPCORITAMAB-BYSP
     Dosage: 48 MILLIGRAM, THIRD ADMINISTRATION
     Route: 065
     Dates: start: 20240215
  4. EPKINLY [Suspect]
     Active Substance: EPCORITAMAB-BYSP
     Dosage: 48 MILLIGRAM, FOURTH ADMINISTRATION, FIFTH ADMINISTRATION, SIXTH ADMINISTRATION
     Route: 065
     Dates: start: 20240307, end: 20240321

REACTIONS (9)
  - Inflammatory marker increased [Recovering/Resolving]
  - Cytomegalovirus infection [Unknown]
  - Bacterial infection [Recovering/Resolving]
  - Haemophagocytic lymphohistiocytosis [Recovered/Resolved]
  - Thrombocytopenia [Recovering/Resolving]
  - Pyrexia [Recovered/Resolved]
  - Diffuse large B-cell lymphoma refractory [Fatal]
  - Productive cough [Unknown]
  - Oedema [Unknown]

NARRATIVE: CASE EVENT DATE: 20240101
